FAERS Safety Report 25883229 (Version 2)
Quarter: 2025Q4

REPORT INFORMATION
  Report Type: Spontaneous
  Country: US (occurrence: US)
  Receive Date: 20251006
  Receipt Date: 20251007
  Transmission Date: 20260118
  Serious: No
  Sender: BRISTOL-MYERS SQUIBB COMPANY
  Company Number: US-BRISTOL-MYERS SQUIBB COMPANY-2025-135981

PATIENT
  Age: 84 Year
  Sex: Male
  Weight: 57.15 kg

DRUGS (5)
  1. REVLIMID [Suspect]
     Active Substance: LENALIDOMIDE
     Indication: Plasma cell myeloma
     Dates: start: 20250922
  2. REVLIMID [Suspect]
     Active Substance: LENALIDOMIDE
     Indication: Diffuse large B-cell lymphoma
  3. FINASTERIDE [Concomitant]
     Active Substance: FINASTERIDE
     Indication: Product used for unknown indication
  4. IPRATROPIUM/ALBUTR [Concomitant]
     Indication: Product used for unknown indication
     Dosage: INH SOL 0.5-3MG/3ML SOL
  5. ROSUVASTATIN CALCIUM [Concomitant]
     Active Substance: ROSUVASTATIN CALCIUM
     Indication: Product used for unknown indication

REACTIONS (2)
  - Pruritus [Recovered/Resolved]
  - Peripheral swelling [Not Recovered/Not Resolved]

NARRATIVE: CASE EVENT DATE: 20250922
